FAERS Safety Report 8159186-8 (Version None)
Quarter: 2012Q1

REPORT INFORMATION
  Report Type: 
  Country: None (occurrence: None)
  Receive Date: 20120216
  Receipt Date: 20120209
  Transmission Date: 20120608
  Serious: Yes (Other)
  Sender: FDA-Public Use
  Company Number: US-JNJFOC-20120203093

PATIENT

DRUGS (3)
  1. ETOPOSIDE [Suspect]
     Indication: ACUTE MYELOID LEUKAEMIA RECURRENT
     Dosage: FOR 3-5 DAYS
  2. ALL OTHER THERAPEUTIC PRODUCTS (ALL OTHER THERAPEUTIC PRODUCTS) INJECT [Suspect]
     Indication: SALVAGE THERAPY
     Dosage: DONOR LYMPHOCYTE INFUSION; BETWEEN DAYS 14-21
  3. DECITABINE [Suspect]
     Indication: ACUTE MYELOID LEUKAEMIA RECURRENT
     Dosage: 20 MG/M2, 1 IN 28 DAY, INTRAVENOUS
     Route: 042

REACTIONS (1)
  - GRAFT VERSUS HOST DISEASE IN SKIN [None]
